FAERS Safety Report 15537196 (Version 1)
Quarter: 2018Q4

REPORT INFORMATION
  Report Type: Report from Study
  Country: DE (occurrence: DE)
  Receive Date: 20181022
  Receipt Date: 20181022
  Transmission Date: 20190205
  Serious: Yes (Hospitalization)
  Sender: FDA-Public Use
  Company Number: DE-PFIZER INC-2018422976

PATIENT
  Age: 78 Year
  Sex: Male
  Weight: 65 kg

DRUGS (21)
  1. FLUOROURACIL. [Suspect]
     Active Substance: FLUOROURACIL
     Indication: COLORECTAL CANCER METASTATIC
     Dosage: 695 MG, UNK
     Route: 040
     Dates: start: 20180529
  2. IRINOTECAN [Suspect]
     Active Substance: IRINOTECAN
     Dosage: 180 MG, UNK
     Route: 065
     Dates: start: 20180925
  3. ASPIRIN. [Concomitant]
     Active Substance: ASPIRIN
     Indication: SYNCOPE
  4. FLUOROURACIL. [Suspect]
     Active Substance: FLUOROURACIL
     Dosage: 2400 MG, UNK
     Route: 042
     Dates: start: 20180925
  5. CALCIUM FOLINATE [Suspect]
     Active Substance: LEUCOVORIN CALCIUM
     Dosage: 400 MG, UNK
     Route: 065
     Dates: start: 20180925
  6. FLUOROURACIL. [Suspect]
     Active Substance: FLUOROURACIL
     Dosage: 4173 MG, UNK
     Route: 040
     Dates: start: 20180612
  7. FLUOROURACIL. [Suspect]
     Active Substance: FLUOROURACIL
     Dosage: 4173 MG, UNK
     Route: 042
     Dates: start: 20180626
  8. PANITUMUMAB [Suspect]
     Active Substance: PANITUMUMAB
     Indication: COLORECTAL CANCER METASTATIC
     Dosage: 390 MG, UNK
     Route: 042
     Dates: start: 20180529
  9. CERTOPARIN SODIUM [Concomitant]
     Active Substance: CERTOPARIN SODIUM
     Indication: PROPHYLAXIS
     Dosage: 300 IU, QD
     Route: 048
     Dates: start: 20180504
  10. CALCIUM FOLINATE [Suspect]
     Active Substance: LEUCOVORIN CALCIUM
     Indication: COLORECTAL CANCER METASTATIC
     Dosage: 695 MG, UNK
     Route: 065
     Dates: start: 20180529
  11. IRINOTECAN [Suspect]
     Active Substance: IRINOTECAN
     Indication: COLORECTAL CANCER METASTATIC
     Dosage: 313 MG, UNK
     Route: 065
     Dates: start: 20180529
  12. FLUOROURACIL. [Suspect]
     Active Substance: FLUOROURACIL
     Dosage: 4173 MG, UNK
     Route: 042
     Dates: start: 20180529
  13. FLUOROURACIL. [Suspect]
     Active Substance: FLUOROURACIL
     Dosage: 695 MG, UNK
     Route: 042
     Dates: start: 20180612
  14. FLUOROURACIL. [Suspect]
     Active Substance: FLUOROURACIL
     Dosage: 695 MG, UNK
     Route: 040
     Dates: start: 20180626
  15. FLUOROURACIL. [Suspect]
     Active Substance: FLUOROURACIL
     Dosage: 400 MG, UNK
     Route: 040
     Dates: start: 20180925
  16. DEXTROMETHORPHAN [Concomitant]
     Active Substance: DEXTROMETHORPHAN
     Indication: PROPHYLAXIS
     Dosage: UNK, CYCLIC
     Dates: start: 20180529
  17. PANTOPRAZOL [PANTOPRAZOLE] [Concomitant]
     Indication: PROPHYLAXIS
     Dosage: 20 MG, QD
     Route: 048
     Dates: start: 20180504
  18. ALOXI [Concomitant]
     Active Substance: PALONOSETRON HYDROCHLORIDE
     Indication: PROPHYLAXIS
     Dosage: 250 MH, AS NECESSARY
     Route: 042
     Dates: start: 20180529
  19. METAMIZOL [METAMIZOLE] [Concomitant]
     Indication: PAIN
     Dosage: 500 MG, QD
     Route: 048
     Dates: start: 20180504
  20. MOVICOL [Concomitant]
     Active Substance: POLYETHYLENE GLYCOL 3350\POTASSIUM CHLORIDE\SODIUM BICARBONATE\SODIUM CHLORIDE
     Indication: CONSTIPATION
     Dosage: 999 UNK, QD
     Route: 048
     Dates: start: 20180504
  21. ASPIRIN. [Concomitant]
     Active Substance: ASPIRIN
     Indication: PAIN
     Dosage: 100 MG, 1X/DAY
     Route: 048
     Dates: start: 20180504

REACTIONS (2)
  - Syncope [Recovered/Resolved]
  - Skin fissures [Unknown]

NARRATIVE: CASE EVENT DATE: 20180827
